FAERS Safety Report 19986383 (Version 1)
Quarter: 2021Q4

REPORT INFORMATION
  Report Type: Spontaneous
  Country: US (occurrence: US)
  Receive Date: 20211022
  Receipt Date: 20211022
  Transmission Date: 20220303
  Serious: No
  Sender: FDA-Public Use
  Company Number: US-CELGENE-USA-20211004524

PATIENT
  Sex: Female

DRUGS (8)
  1. POMALYST [Suspect]
     Active Substance: POMALIDOMIDE
     Indication: Plasma cell myeloma
     Dosage: 25 MILLIGRAM
     Route: 048
     Dates: start: 201111
  2. POMALYST [Suspect]
     Active Substance: POMALIDOMIDE
     Dosage: 10 MILLIGRAM
     Route: 048
     Dates: start: 201111
  3. POMALYST [Suspect]
     Active Substance: POMALIDOMIDE
     Dosage: 15 MILLIGRAM
     Route: 048
     Dates: start: 201112
  4. POMALYST [Suspect]
     Active Substance: POMALIDOMIDE
     Dosage: 25 MILLIGRAM
     Route: 048
     Dates: start: 201205
  5. POMALYST [Suspect]
     Active Substance: POMALIDOMIDE
     Dosage: 15 MILLIGRAM
     Route: 048
     Dates: start: 201506
  6. POMALYST [Suspect]
     Active Substance: POMALIDOMIDE
     Dosage: 25 MILLIGRAM
     Route: 048
     Dates: start: 201609
  7. POMALYST [Suspect]
     Active Substance: POMALIDOMIDE
     Dosage: 15 MILLIGRAM
     Route: 048
     Dates: start: 201710
  8. POMALYST [Suspect]
     Active Substance: POMALIDOMIDE
     Dosage: 3 MILLIGRAM
     Route: 048
     Dates: start: 201904

REACTIONS (1)
  - Diarrhoea [Unknown]
